FAERS Safety Report 5485211-9 (Version None)
Quarter: 2007Q4

REPORT INFORMATION
  Report Type: 
  Country: None (occurrence: None)
  Receive Date: 20071010
  Receipt Date: 20070926
  Transmission Date: 20080405
  Serious: Yes (Other)
  Sender: FDA-Public Use
  Company Number: 2007AP001053

PATIENT
  Age: 76 Year
  Sex: Female

DRUGS (2)
  1. AMLODIPINE BESYLATE [Suspect]
     Indication: BLOOD PRESSURE INCREASED
     Dosage: 5 MG; PO
     Route: 048
     Dates: start: 20070817, end: 20070906
  2. RAMIPRIL [Suspect]
     Indication: BLOOD PRESSURE INCREASED
     Dosage: 10 MG; PO
     Route: 048
     Dates: start: 20070626

REACTIONS (2)
  - DRUG INTERACTION [None]
  - SOMNOLENCE [None]
